FAERS Safety Report 6082580-6 (Version None)
Quarter: 2009Q1

REPORT INFORMATION
  Report Type: 
  Country: None (occurrence: None)
  Receive Date: 20090218
  Receipt Date: 20090205
  Transmission Date: 20090719
  Serious: Yes (Hospitalization)
  Sender: FDA-Public Use
  Company Number: JP-PFIZER INC-2009167201

PATIENT

DRUGS (4)
  1. BANAN [Suspect]
     Indication: PURULENCE
     Dosage: UNK
     Dates: start: 20090123
  2. CRAVIT [Suspect]
     Indication: PURULENCE
     Dosage: 100 MG, 2X/DAY
     Route: 048
     Dates: end: 20090122
  3. CEFMETAZON [Suspect]
     Dosage: UNK
     Dates: start: 20090117, end: 20090120
  4. GASTER [Concomitant]

REACTIONS (1)
  - RHABDOMYOLYSIS [None]
